FAERS Safety Report 10049701 (Version 1)
Quarter: 2014Q2

REPORT INFORMATION
  Report Type: Spontaneous
  Country: GB (occurrence: GB)
  Receive Date: 20140401
  Receipt Date: 20140401
  Transmission Date: 20141212
  Serious: Yes (Disabling, Other)
  Sender: FDA-Public Use
  Company Number: GB-009507513-1403GBR013081

PATIENT
  Age: 48 Year
  Sex: Male
  Weight: 75 kg

DRUGS (1)
  1. SIMVASTATIN [Suspect]
     Indication: HYPERCHOLESTEROLAEMIA
     Dosage: 40 MG
     Route: 048
     Dates: start: 201310, end: 201311

REACTIONS (1)
  - Palpitations [Recovered/Resolved]
